FAERS Safety Report 21119908 (Version 14)
Quarter: 2025Q3

REPORT INFORMATION
  Report Type: Report from Study
  Country: EU (occurrence: EU)
  Receive Date: 20220722
  Receipt Date: 20250724
  Transmission Date: 20251020
  Serious: Yes (Hospitalization)
  Sender: PFIZER
  Company Number: EU-PFM-2021-09248

PATIENT
  Age: 81 Year
  Sex: Male

DRUGS (21)
  1. ENCORAFENIB [Suspect]
     Active Substance: ENCORAFENIB
     Indication: Malignant melanoma
     Dosage: 300 MG, QD (1/DAY)
     Route: 048
     Dates: start: 20210624, end: 20210722
  2. ENCORAFENIB [Suspect]
     Active Substance: ENCORAFENIB
     Dates: end: 20210803
  3. ENCORAFENIB [Suspect]
     Active Substance: ENCORAFENIB
     Dosage: 200 MG, QD (1/DAY)
     Route: 048
     Dates: start: 20210810, end: 20210908
  4. ENCORAFENIB [Suspect]
     Active Substance: ENCORAFENIB
     Dosage: 200 MG, QD (1/DAY)
     Route: 048
     Dates: start: 20210915, end: 20220303
  5. ENCORAFENIB [Suspect]
     Active Substance: ENCORAFENIB
     Dosage: 200 MG, QD (1/DAY)
     Route: 048
     Dates: start: 20220310, end: 20220405
  6. ENCORAFENIB [Suspect]
     Active Substance: ENCORAFENIB
     Dosage: 300 MG, QD (1/DAY)
     Route: 048
     Dates: start: 20220407, end: 20221018
  7. BINIMETINIB [Suspect]
     Active Substance: BINIMETINIB
     Indication: Malignant melanoma
     Dosage: 30 MG, BID (2/DAY)
     Route: 048
     Dates: start: 20210624, end: 20210722
  8. BINIMETINIB [Suspect]
     Active Substance: BINIMETINIB
     Dates: end: 20210803
  9. BINIMETINIB [Suspect]
     Active Substance: BINIMETINIB
     Dosage: 30 MG, BID (2/DAY)
     Route: 048
     Dates: start: 20210810, end: 20210908
  10. BINIMETINIB [Suspect]
     Active Substance: BINIMETINIB
     Dosage: 30 MG, BID (2/DAY)
     Route: 048
     Dates: start: 20210915, end: 20220303
  11. BINIMETINIB [Suspect]
     Active Substance: BINIMETINIB
     Dosage: 30 MG, BID (2/DAY)
     Route: 048
     Dates: start: 20220310, end: 20220405
  12. BINIMETINIB [Suspect]
     Active Substance: BINIMETINIB
     Dosage: 30 MG, BID (2/DAY)
     Route: 048
     Dates: start: 20220407, end: 20221018
  13. ASPIRIN [Concomitant]
     Active Substance: ASPIRIN
  14. AMLODIPINE [Concomitant]
     Active Substance: AMLODIPINE BESYLATE
  15. BISOPROLOL [Concomitant]
     Active Substance: BISOPROLOL
  16. ISOSORBIDE MONONITRATE [Concomitant]
     Active Substance: ISOSORBIDE MONONITRATE
     Indication: Prophylaxis
  17. METFORMIN [Concomitant]
     Active Substance: METFORMIN HYDROCHLORIDE
  18. PANTOPRAZOLE [Concomitant]
     Active Substance: PANTOPRAZOLE
     Indication: Prophylaxis
  19. RAMIPRIL [Concomitant]
     Active Substance: RAMIPRIL
  20. NOVORAPID [Concomitant]
     Active Substance: INSULIN ASPART
     Route: 065
  21. PROTAPHANE [Concomitant]
     Active Substance: INSULIN HUMAN

REACTIONS (14)
  - Spinal stenosis [Recovered/Resolved]
  - Lipase increased [Unknown]
  - Amylase increased [Unknown]
  - Diarrhoea [Recovered/Resolved]
  - Dizziness [Recovered/Resolved]
  - Constipation [Recovered/Resolved]
  - Pain in extremity [Recovered/Resolved]
  - Pain in extremity [Recovered/Resolved]
  - Nausea [Recovered/Resolved]
  - Dizziness [Recovered/Resolved]
  - Nausea [Unknown]
  - Hypocalcaemia [Recovered/Resolved]
  - Hypomagnesaemia [Unknown]
  - Procedural pain [Not Recovered/Not Resolved]

NARRATIVE: CASE EVENT DATE: 20210701
